FAERS Safety Report 4445758-0 (Version None)
Quarter: 2004Q3

REPORT INFORMATION
  Report Type: 
  Country: None (occurrence: None)
  Receive Date: 20040902
  Receipt Date: 20040820
  Transmission Date: 20050211
  Serious: Yes (Hospitalization)
  Sender: FDA-Public Use
  Company Number: MEST00304002815

PATIENT
  Age: 50 Year
  Sex: Male

DRUGS (1)
  1. ROWASA [Suspect]
     Indication: COLITIS ULCERATIVE
     Dosage: 2 DF TID PO
     Route: 048
     Dates: start: 19940101, end: 20040721

REACTIONS (5)
  - C-REACTIVE PROTEIN INCREASED [None]
  - INFLAMMATION [None]
  - MYALGIA [None]
  - PYREXIA [None]
  - RED BLOOD CELL SEDIMENTATION RATE INCREASED [None]
